FAERS Safety Report 7450833-2 (Version None)
Quarter: 2011Q2

REPORT INFORMATION
  Report Type: 
  Country: None (occurrence: None)
  Receive Date: 20110422
  Receipt Date: 20110413
  Transmission Date: 20111010
  Serious: Yes (Hospitalization, Other)
  Sender: FDA-Public Use
  Company Number: WAES 1104USA00841

PATIENT
  Age: 31 Year
  Sex: Male

DRUGS (14)
  1. ISENTRESS [Suspect]
     Indication: HIV INFECTION
     Dosage: 400 MG BID, PO
     Route: 048
     Dates: start: 20110217, end: 20110227
  2. ASCORBIC ACID [Concomitant]
  3. INOSINE PRANOBEX [Concomitant]
  4. NITROFURAZONE [Concomitant]
  5. TAB BLINDED THERAPY [Suspect]
     Dosage: 1 TAB DAILY, PO
     Route: 048
     Dates: start: 20110217, end: 20110227
  6. ABACAVIR SULFATE AND LAMIVUDINE [Suspect]
     Dosage: 1 TAB DAILY, PO
     Route: 048
     Dates: start: 20110217, end: 20110228
  7. ASCORUTIN [Concomitant]
  8. PAPAVERINE HCL [Concomitant]
  9. DICLOFENAC SODIUM [Concomitant]
  10. DROTAVERINE [Concomitant]
  11. FLUCONAZOLE [Concomitant]
  12. PANCREATIN [Concomitant]
  13. PHOSPHOGLIV [Concomitant]
  14. ACETAMINOPHEN [Concomitant]

REACTIONS (13)
  - PHARYNGITIS [None]
  - PETECHIAE [None]
  - DIARRHOEA [None]
  - TRACHEITIS [None]
  - INSOMNIA [None]
  - PSORIASIS [None]
  - BLOOD ALBUMIN INCREASED [None]
  - HEPATITIS C ANTIBODY POSITIVE [None]
  - LYMPHADENITIS [None]
  - CYTOLYTIC HEPATITIS [None]
  - HEPATITIS C [None]
  - HYPERSENSITIVITY [None]
  - RESPIRATORY TRACT INFECTION VIRAL [None]
